FAERS Safety Report 7974434-2 (Version None)
Quarter: 2011Q4

REPORT INFORMATION
  Report Type: 
  Country: None (occurrence: None)
  Receive Date: 20111213
  Receipt Date: 20111130
  Transmission Date: 20120403
  Serious: Yes (Other)
  Sender: FDA-Public Use
  Company Number: GB-MYLANLABS-2011S1024738

PATIENT
  Age: 73 Year
  Sex: Female

DRUGS (7)
  1. CLARITHROMYCIN [Suspect]
     Route: 048
     Dates: start: 20111027, end: 20111102
  2. CLARITHROMYCIN [Suspect]
     Indication: CELLULITIS
     Route: 042
     Dates: start: 20111026, end: 20111027
  3. ASPIRIN [Concomitant]
     Indication: CARDIOVASCULAR EVENT PROPHYLAXIS
     Route: 048
  4. ACETAMINOPHEN [Concomitant]
     Indication: PAIN
     Route: 048
  5. GLICLAZIDE [Concomitant]
     Indication: DIABETES MELLITUS
     Route: 048
  6. AMLODIPINE [Concomitant]
     Indication: HYPERTENSION
     Route: 048
  7. LOSARTAN POTASSIUM [Concomitant]
     Indication: HYPERTENSION
     Route: 048

REACTIONS (3)
  - RASH GENERALISED [None]
  - RASH MACULAR [None]
  - PRURITUS [None]
